FAERS Safety Report 6007827-3 (Version None)
Quarter: 2008Q4

REPORT INFORMATION
  Report Type: 
  Country: None (occurrence: None)
  Receive Date: 20081217
  Receipt Date: 20080701
  Transmission Date: 20090506
  Serious: No
  Sender: FDA-Public Use
  Company Number: US-ASTRAZENECA-2008UW13166

PATIENT
  Age: 83 Year
  Sex: Female

DRUGS (3)
  1. CRESTOR [Suspect]
     Indication: BLOOD CHOLESTEROL INCREASED
     Route: 048
     Dates: start: 20080625
  2. BLOOD PRESSURE MEDICATION [Concomitant]
     Indication: BLOOD PRESSURE
  3. DIABETES PILL [Concomitant]

REACTIONS (3)
  - ABDOMINAL DISCOMFORT [None]
  - LIMB DISCOMFORT [None]
  - OEDEMA PERIPHERAL [None]
